FAERS Safety Report 12236219 (Version 2)
Quarter: 2016Q2

REPORT INFORMATION
  Report Type: Spontaneous
  Country: US (occurrence: US)
  Receive Date: 20160404
  Receipt Date: 20160414
  Transmission Date: 20160815
  Serious: Yes (Hospitalization)
  Sender: FDA-Public Use
  Company Number: US-BIOGEN-2016BI00212926

PATIENT
  Sex: Female

DRUGS (1)
  1. TYSABRI [Suspect]
     Active Substance: NATALIZUMAB
     Indication: MULTIPLE SCLEROSIS
     Route: 065
     Dates: start: 20150604

REACTIONS (4)
  - Migraine [Not Recovered/Not Resolved]
  - Memory impairment [Unknown]
  - Multiple sclerosis relapse [Recovered/Resolved]
  - Chest pain [Not Recovered/Not Resolved]
